FAERS Safety Report 8781145 (Version 2)
Quarter: 2013Q4

REPORT INFORMATION
  Report Type: Spontaneous
  Country: CL (occurrence: CL)
  Receive Date: 20120913
  Receipt Date: 20131108
  Transmission Date: 20140711
  Serious: Yes (Other)
  Sender: FDA-Public Use
  Company Number: CL-009507513-1209CHL003197

PATIENT
  Sex: Female

DRUGS (1)
  1. NUVARING [Suspect]
     Indication: CONTRACEPTION
     Dosage: DELIVERS 0.120MG/0.015MG, QD
     Route: 067

REACTIONS (1)
  - Systemic lupus erythematosus [Not Recovered/Not Resolved]
